FAERS Safety Report 5990768-5 (Version None)
Quarter: 2008Q4

REPORT INFORMATION
  Report Type: 
  Country: None (occurrence: None)
  Receive Date: 20081209
  Receipt Date: 20081124
  Transmission Date: 20090506
  Serious: Yes (Death)
  Sender: FDA-Public Use
  Company Number: KV200800505

PATIENT
  Age: 57 Year
  Sex: Male
  Weight: 63.5 kg

DRUGS (8)
  1. MORPHINE SULFATE [Suspect]
     Indication: BACK PAIN
     Dosage: 15 MG, QD, ORAL
     Route: 048
     Dates: end: 20080801
  2. RANITIDINE [Concomitant]
  3. OMEPRAZOLE [Concomitant]
  4. ALPRAZOLAM [Concomitant]
  5. DOXEPIN HCL [Concomitant]
  6. CYCLOBENZAPRINE [Concomitant]
  7. LEXAPRO [Concomitant]
  8. GEMFIBROZIL [Concomitant]

REACTIONS (2)
  - METABOLIC ENCEPHALOPATHY [None]
  - PRODUCT QUALITY ISSUE [None]
